FAERS Safety Report 5358060-X (Version None)
Quarter: 2007Q2

REPORT INFORMATION
  Report Type: 
  Country: None (occurrence: None)
  Receive Date: 20070530
  Receipt Date: 20061127
  Transmission Date: 20071010
  Serious: No
  Sender: FDA-Public Use
  Company Number: US200606000874

PATIENT
  Age: 28 Year
  Sex: Female
  Weight: 45.4 kg

DRUGS (4)
  1. ZYPREXA [Suspect]
     Dosage: 20 MG
     Dates: start: 20020101, end: 20020501
  2. WELLBUTRIN [Concomitant]
  3. PROZAC [Concomitant]
  4. EFFEXOR [Concomitant]

REACTIONS (3)
  - DIABETES MELLITUS [None]
  - POLYDIPSIA [None]
  - VISION BLURRED [None]
